FAERS Safety Report 8746250 (Version 4)
Quarter: 2014Q2

REPORT INFORMATION
  Report Type: Spontaneous
  Country: BR (occurrence: BR)
  Receive Date: 20120827
  Receipt Date: 20140505
  Transmission Date: 20141212
  Serious: Yes (Other)
  Sender: FDA-Public Use
  Company Number: BR-JNJFOC-20120812085

PATIENT
  Sex: Female
  Weight: 58 kg

DRUGS (16)
  1. REMICADE [Suspect]
     Indication: RHEUMATOID ARTHRITIS
     Route: 042
     Dates: start: 2005
  2. REMICADE [Suspect]
     Indication: RHEUMATOID ARTHRITIS
     Route: 042
     Dates: start: 201312
  3. REMICADE [Suspect]
     Indication: RHEUMATOID ARTHRITIS
     Route: 042
     Dates: start: 20120717
  4. REMICADE [Suspect]
     Indication: RHEUMATOID ARTHRITIS
     Route: 042
     Dates: start: 20140213
  5. REMICADE [Suspect]
     Indication: RHEUMATOID ARTHRITIS
     Dosage: 4 DOSAGE FORMS
     Route: 042
     Dates: start: 2004
  6. PREDSIM [Suspect]
     Indication: PAIN
     Route: 065
     Dates: start: 2005, end: 2008
  7. ANTIDIABETIC DRUG [Suspect]
     Indication: DIABETES MELLITUS
     Route: 065
     Dates: start: 2010
  8. FOLIC ACID [Concomitant]
     Indication: NUTRITIONAL SUPPLEMENTATION
     Route: 065
     Dates: start: 201208
  9. CALCIUM [Concomitant]
     Indication: BONE DISORDER
     Route: 065
  10. CALCIUM [Concomitant]
     Indication: OSTEOPOROSIS PROPHYLAXIS
     Route: 065
  11. METFORMIN [Concomitant]
     Indication: DIABETES MELLITUS
     Route: 065
  12. OMEPRAZOLE [Concomitant]
     Indication: GASTROINTESTINAL DISORDER THERAPY
     Route: 065
  13. CLONAZEPAM [Concomitant]
     Indication: SLEEP DISORDER THERAPY
     Route: 065
  14. VITAMIN C [Concomitant]
     Indication: VITAMIN SUPPLEMENTATION
     Dosage: 25 DROPS
     Route: 065
  15. METHOTREXATE [Concomitant]
     Indication: RHEUMATOID ARTHRITIS
     Route: 065
     Dates: end: 201310
  16. PURAN T4 [Concomitant]
     Indication: THYROID DISORDER
     Route: 065

REACTIONS (10)
  - Atrophy [Not Recovered/Not Resolved]
  - Diabetes mellitus [Recovering/Resolving]
  - Thyroid neoplasm [Recovering/Resolving]
  - Limb deformity [Unknown]
  - Loss of consciousness [Recovered/Resolved]
  - Hypoglycaemia [Recovered/Resolved]
  - Therapeutic response decreased [Not Recovered/Not Resolved]
  - Pain [Not Recovered/Not Resolved]
  - Arthralgia [Not Recovered/Not Resolved]
  - Joint swelling [Not Recovered/Not Resolved]
